FAERS Safety Report 8416265-5 (Version None)
Quarter: 2012Q2

REPORT INFORMATION
  Report Type: 
  Country: None (occurrence: None)
  Receive Date: 20120606
  Receipt Date: 20120524
  Transmission Date: 20120825
  Serious: Yes (Other)
  Sender: FDA-Public Use
  Company Number: US-ELI_LILLY_AND_COMPANY-US201205009688

PATIENT
  Age: 70 Year
  Sex: Female

DRUGS (16)
  1. ZYPREXA [Suspect]
     Indication: DELIRIUM
     Dosage: 2.5 MG, Q6H PRN FOR 7 DAYS
  2. LASIX [Concomitant]
  3. VITAMIN E [Concomitant]
  4. LEVOTHYROXINE SODIUM [Concomitant]
  5. POTASSIUM CHLORIDE [Concomitant]
  6. ASPIRIN [Concomitant]
  7. COLACE [Concomitant]
  8. SERAX [Concomitant]
  9. LISINOPRIL [Concomitant]
  10. SOTALOL [Concomitant]
  11. FLEXERIL [Concomitant]
  12. NORVASC [Concomitant]
  13. LOVAZA [Concomitant]
  14. FOSAMAX [Concomitant]
  15. COUMADIN [Concomitant]
  16. FERROUS SULFATE TAB [Concomitant]

REACTIONS (2)
  - HOSPITALISATION [None]
  - OFF LABEL USE [None]
